FAERS Safety Report 8860431 (Version 1)
Quarter: 2012Q4

REPORT INFORMATION
  Report Type: 
  Country: IN (occurrence: IN)
  Receive Date: 20121025
  Receipt Date: 20121025
  Transmission Date: 20130627
  Serious: Yes (Other)
  Sender: FDA-Public Use
  Company Number: PHHY2012IN094933

PATIENT
  Age: 5 Year
  Sex: Male

DRUGS (2)
  1. IMATINIB [Suspect]
     Indication: HYPEREOSINOPHILIC SYNDROME
     Route: 048
  2. PREDNISOLONE [Concomitant]
     Indication: HYPEREOSINOPHILIC SYNDROME
     Route: 048

REACTIONS (1)
  - Blast cell count increased [Unknown]
